FAERS Safety Report 4388274-7 (Version None)
Quarter: 2004Q3

REPORT INFORMATION
  Report Type: 
  Country: None (occurrence: None)
  Receive Date: 20040701
  Receipt Date: 20040628
  Transmission Date: 20050211
  Serious: Yes (Life-Threatening)
  Sender: FDA-Public Use
  Company Number: US-BRISTOL-MYERS SQUIBB COMPANY-12627311

PATIENT
  Age: 62 Year
  Sex: Male

DRUGS (2)
  1. METFORMIN HCL [Suspect]
     Route: 048
  2. ALPRAZOLAM (GEN) [Concomitant]
     Route: 048

REACTIONS (3)
  - ANXIETY [None]
  - PSYCHIATRIC SYMPTOM [None]
  - SUICIDAL IDEATION [None]
